FAERS Safety Report 7586286-3 (Version None)
Quarter: 2011Q3

REPORT INFORMATION
  Report Type: 
  Country: None (occurrence: None)
  Receive Date: 20110701
  Receipt Date: 20110629
  Transmission Date: 20111222
  Serious: Yes (Life-Threatening)
  Sender: FDA-Public Use
  Company Number: US-B.I. PHARMACEUTICALS,INC./RIDGEFIELD-2011-BP-14153BP

PATIENT
  Age: 78 Year
  Sex: Male

DRUGS (4)
  1. PROSCAR [Concomitant]
     Indication: PROSTATOMEGALY
     Route: 048
  2. FLOMAX [Suspect]
     Indication: PROSTATOMEGALY
     Dosage: 0.4 MG
     Route: 048
  3. ATIVAN [Concomitant]
     Indication: ANXIETY
     Route: 048
  4. PRADAXA [Suspect]
     Indication: ATRIAL FIBRILLATION
     Dosage: 300 MG
     Route: 048
     Dates: start: 20101201

REACTIONS (1)
  - SYNCOPE [None]
